FAERS Safety Report 9655853 (Version 2)
Quarter: 2013Q4

REPORT INFORMATION
  Report Type: Spontaneous
  Country: US (occurrence: US)
  Receive Date: 20131030
  Receipt Date: 20131126
  Transmission Date: 20140711
  Serious: Yes (Other)
  Sender: FDA-Public Use
  Company Number: US-AMGEN-USASP2013075991

PATIENT
  Age: 70 Year
  Sex: Female
  Weight: 76 kg

DRUGS (5)
  1. ENBREL [Suspect]
     Indication: PSORIATIC ARTHROPATHY
     Dosage: 50 MG, QWK
     Route: 058
     Dates: start: 20120329
  2. COMBIVENT RESPIMAT [Concomitant]
     Dosage: AER
  3. CALTRATE                           /00944201/ [Concomitant]
     Dosage: 600
  4. MULTIVITAMINS, PLAIN [Concomitant]
     Dosage: UNK
  5. FLUTICASONE                        /00972202/ [Concomitant]
     Dosage: 50 MUG,SPR

REACTIONS (3)
  - Wound infection [Recovered/Resolved]
  - Scratch [Recovered/Resolved]
  - Psoriasis [Recovered/Resolved]
